APPROVED DRUG PRODUCT: NUROMAX
Active Ingredient: DOXACURIUM CHLORIDE
Strength: EQ 1MG BASE/ML
Dosage Form/Route: INJECTABLE;INJECTION
Application: N019946 | Product #001
Applicant: ABBVIE INC
Approved: Mar 7, 1991 | RLD: No | RS: No | Type: DISCN